FAERS Safety Report 4498794-2 (Version None)
Quarter: 2004Q4

REPORT INFORMATION
  Report Type: 
  Country: None (occurrence: None)
  Receive Date: 20041111
  Receipt Date: 20041102
  Transmission Date: 20050328
  Serious: Yes (Hospitalization)
  Sender: FDA-Public Use
  Company Number: 200414136FR

PATIENT
  Age: 76 Year
  Sex: Male
  Weight: 98 kg

DRUGS (12)
  1. RIFADIN [Suspect]
     Route: 048
     Dates: start: 20040914, end: 20040920
  2. TAVANIC [Suspect]
     Indication: SEPTIC ARTHRITIS STAPHYLOCOCCAL
     Route: 042
     Dates: start: 20040901, end: 20041006
  3. LASILIX [Suspect]
     Route: 048
  4. ACETAMINOPHEN W/ PROPOXYPHENE HCL [Suspect]
     Dosage: DOSE: 2-2-2; DOSE UNIT: UNITS
     Route: 048
     Dates: start: 20040914, end: 20040921
  5. ORBENIN CAP [Suspect]
     Indication: SEPTIC ARTHRITIS STAPHYLOCOCCAL
     Route: 042
     Dates: start: 20040901, end: 20041007
  6. ALDACTONE [Suspect]
     Route: 048
  7. THIAMINE HCL [Concomitant]
  8. VITAMIN B6 [Concomitant]
  9. DIFFU K [Concomitant]
  10. MOTILIUM [Concomitant]
  11. SERESTA [Concomitant]
     Indication: AGITATION
     Route: 048
  12. DUPHALAC [Concomitant]

REACTIONS (8)
  - ABDOMINAL PAIN UPPER [None]
  - CHOLESTASIS [None]
  - CONDITION AGGRAVATED [None]
  - CYTOLYTIC HEPATITIS [None]
  - HEPATIC CIRRHOSIS [None]
  - OEDEMA PERIPHERAL [None]
  - OESOPHAGEAL CANDIDIASIS [None]
  - PORTAL HYPERTENSION [None]
